FAERS Safety Report 7337345 (Version 6)
Quarter: 2013Q3

REPORT INFORMATION
  Report Type: Spontaneous
  Country: US (occurrence: US)
  Receive Date: 20100330
  Receipt Date: 20130701
  Transmission Date: 20140515
  Serious: No
  Sender: FDA-Public Use
  Company Number: US-BIOGENIDEC-2010BI008964

PATIENT
  Age: 53 Year
  Sex: Female

DRUGS (2)
  1. TYSABRI [Suspect]
     Indication: MULTIPLE SCLEROSIS
     Route: 042
     Dates: start: 20070827
  2. SLEEP AIDS [Concomitant]
     Indication: PRODUCT USED FOR UNKNOWN INDICATION

REACTIONS (18)
  - Varicose vein [Recovered/Resolved]
  - Phlebitis [Recovered/Resolved]
  - Fall [Recovered/Resolved]
  - Rib fracture [Recovered/Resolved]
  - Intervertebral disc displacement [Not Recovered/Not Resolved]
  - Dislocation of vertebra [Not Recovered/Not Resolved]
  - Joint dislocation [Not Recovered/Not Resolved]
  - Back injury [Recovered/Resolved]
  - Neck injury [Recovered/Resolved]
  - Hypoaesthesia [Not Recovered/Not Resolved]
  - Muscle spasms [Recovered/Resolved]
  - Temperature intolerance [Not Recovered/Not Resolved]
  - Intervertebral disc annular tear [Recovered/Resolved]
  - Back pain [Not Recovered/Not Resolved]
  - Multiple sclerosis relapse [Recovered/Resolved]
  - Fatigue [Not Recovered/Not Resolved]
  - Malaise [Unknown]
  - Herpes zoster [Unknown]
